FAERS Safety Report 23047734 (Version 4)
Quarter: 2023Q4

REPORT INFORMATION
  Report Type: Report from Study
  Country: CA (occurrence: CA)
  Receive Date: 20231010
  Receipt Date: 20231202
  Transmission Date: 20240109
  Serious: Yes (Hospitalization, Other)
  Sender: FDA-Public Use
  Company Number: CA-CELLTRION INC.-2023CA019449

PATIENT

DRUGS (1)
  1. TRUXIMA [Suspect]
     Active Substance: RITUXIMAB-ABBS
     Indication: Vasculitis
     Dosage: 500 MG, Q6MONTHS
     Route: 042
     Dates: start: 20220428

REACTIONS (2)
  - Bladder cancer [Unknown]
  - Surgery [Unknown]

NARRATIVE: CASE EVENT DATE: 20230301
